FAERS Safety Report 21236966 (Version 2)
Quarter: 2022Q4

REPORT INFORMATION
  Report Type: Spontaneous
  Country: DK (occurrence: DK)
  Receive Date: 20220822
  Receipt Date: 20221205
  Transmission Date: 20230112
  Serious: Yes (Other)
  Sender: FDA-Public Use
  Company Number: DK-JNJFOC-20220826014

PATIENT
  Age: 48 Year

DRUGS (3)
  1. DEXAMETHASONE [Suspect]
     Active Substance: DEXAMETHASONE
     Indication: Plasma cell myeloma
     Dosage: FIRST LINE TREATMENT
     Route: 065
     Dates: start: 20220110, end: 202203
  2. VELCADE [Suspect]
     Active Substance: BORTEZOMIB
     Indication: Plasma cell myeloma
     Dosage: FIRST LINE TREATMENT
     Route: 065
     Dates: start: 20220110, end: 202203
  3. LENALIDOMIDE [Suspect]
     Active Substance: LENALIDOMIDE
     Indication: Plasma cell myeloma
     Dosage: FIRST LINE TREATMENT
     Route: 065
     Dates: start: 20220110, end: 202203

REACTIONS (1)
  - Plasma cell myeloma [Unknown]
